FAERS Safety Report 9045792 (Version 2)
Quarter: 2013Q1

REPORT INFORMATION
  Report Type: Report from Study
  Country: US (occurrence: US)
  Receive Date: 20130201
  Receipt Date: 20130214
  Transmission Date: 20140127
  Serious: Yes (Hospitalization, Other)
  Sender: FDA-Public Use
  Company Number: US-ABBOTT-12P-163-0979690-00

PATIENT
  Age: 70 None
  Sex: Female
  Weight: 68.1 kg

DRUGS (7)
  1. HUMIRA [Suspect]
     Indication: CROHN^S DISEASE
     Dosage: LOADING DOSE
     Dates: start: 20120912, end: 20120912
  2. HUMIRA [Suspect]
     Dates: start: 20120926, end: 20120926
  3. HUMIRA [Suspect]
     Dates: start: 20120926, end: 20121206
  4. NICOTINE [Suspect]
     Indication: EX-TOBACCO USER
     Dosage: PATCH
     Dates: start: 20121101
  5. DIPHENATROPINE [Concomitant]
     Indication: DIARRHOEA
     Dosage: AS NEEDED
  6. ALBUTEROL [Concomitant]
     Indication: CHRONIC OBSTRUCTIVE PULMONARY DISEASE
     Route: 055
  7. LOMOTIL [Concomitant]
     Indication: DIARRHOEA

REACTIONS (10)
  - Malaise [Unknown]
  - Laryngitis [Unknown]
  - Bronchitis [Recovered/Resolved]
  - Malaise [Not Recovered/Not Resolved]
  - Injection site pain [Recovered/Resolved]
  - Crohn^s disease [Not Recovered/Not Resolved]
  - Asthenia [Not Recovered/Not Resolved]
  - Frequent bowel movements [Not Recovered/Not Resolved]
  - Injection site pain [Unknown]
  - Drug ineffective [Unknown]
